FAERS Safety Report 12565093 (Version 1)
Quarter: 2016Q3

REPORT INFORMATION
  Report Type: Spontaneous
  Country: US (occurrence: None)
  Receive Date: 20160715
  Receipt Date: 20160715
  Transmission Date: 20161109
  Serious: Yes (Life-Threatening, Hospitalization)
  Sender: FDA-Public Use
  Company Number: None

PATIENT
  Age: 44 Year
  Sex: Female
  Weight: 66 kg

DRUGS (2)
  1. CELEXA [Concomitant]
     Active Substance: CITALOPRAM HYDROBROMIDE
  2. CITALOPRAM [Suspect]
     Active Substance: CITALOPRAM HYDROBROMIDE
     Indication: DEPRESSION
     Route: 048
     Dates: start: 20140708, end: 20160714

REACTIONS (1)
  - Haemolytic anaemia [None]

NARRATIVE: CASE EVENT DATE: 20160713
